FAERS Safety Report 8540121-5 (Version None)
Quarter: 2012Q3

REPORT INFORMATION
  Report Type: 
  Country: None (occurrence: None)
  Receive Date: 20120726
  Receipt Date: 20120718
  Transmission Date: 20120928
  Serious: Yes (Other)
  Sender: FDA-Public Use
  Company Number: IN-ROCHE-1090115

PATIENT
  Sex: Male

DRUGS (2)
  1. OXALIPLATIN [Concomitant]
     Dates: start: 20110901, end: 20120101
  2. XELODA [Suspect]
     Indication: GASTRIC CANCER
     Dates: start: 20110901, end: 20120101

REACTIONS (1)
  - NEOPLASM PROGRESSION [None]
